FAERS Safety Report 12472341 (Version 3)
Quarter: 2016Q3

REPORT INFORMATION
  Report Type: Spontaneous
  Country: US (occurrence: US)
  Receive Date: 20160616
  Receipt Date: 20160808
  Transmission Date: 20161109
  Serious: No
  Sender: FDA-Public Use
  Company Number: US-BEH-2015055266

PATIENT
  Age: 59 Year
  Sex: Female
  Weight: 45 kg

DRUGS (25)
  1. LEVOTHYROXINE. [Concomitant]
     Active Substance: LEVOTHYROXINE
  2. ASACOL [Concomitant]
     Active Substance: MESALAMINE
  3. HIZENTRA [Suspect]
     Active Substance: HUMAN IMMUNOGLOBULIN G
     Route: 058
     Dates: start: 20120507
  4. VITAMIN D3 [Concomitant]
     Active Substance: CHOLECALCIFEROL
  5. GUAIFENESIN ER [Concomitant]
     Active Substance: GUAIFENESIN
  6. FLUCONAZOLE. [Concomitant]
     Active Substance: FLUCONAZOLE
  7. HIZENTRA [Suspect]
     Active Substance: HUMAN IMMUNOGLOBULIN G
     Route: 058
  8. EPIPEN [Concomitant]
     Active Substance: EPINEPHRINE
  9. ACETAMINOPHEN. [Concomitant]
     Active Substance: ACETAMINOPHEN
  10. LIDOCAINE. [Concomitant]
     Active Substance: LIDOCAINE
  11. NORVASC [Concomitant]
     Active Substance: AMLODIPINE BESYLATE
  12. COMPLETE MULTIVITAMIN [Concomitant]
     Active Substance: VITAMINS
  13. VITAMIN D [Concomitant]
     Active Substance: CHOLECALCIFEROL
  14. HIZENTRA [Suspect]
     Active Substance: HUMAN IMMUNOGLOBULIN G
     Indication: IMMUNODEFICIENCY COMMON VARIABLE
     Route: 058
  15. DIPHENHYDRAMINE. [Concomitant]
     Active Substance: DIPHENHYDRAMINE
  16. FLORAJEN 3 [Concomitant]
     Active Substance: PROBIOTICS NOS
  17. AVAPRO [Concomitant]
     Active Substance: IRBESARTAN
  18. FLUDROCORTISONE [Concomitant]
     Active Substance: FLUDROCORTISONE
  19. SPIRIVA [Concomitant]
     Active Substance: TIOTROPIUM BROMIDE MONOHYDRATE
  20. LIDOCAINE/PRILOCAINE [Concomitant]
     Active Substance: LIDOCAINE\PRILOCAINE
  21. BETAMETHASONE VALERATE. [Concomitant]
     Active Substance: BETAMETHASONE VALERATE
  22. ESTRADIOL. [Concomitant]
     Active Substance: ESTRADIOL
  23. ALBUTEROL. [Concomitant]
     Active Substance: ALBUTEROL
  24. TYLENOL EX-STR [Concomitant]
  25. RANITIDINE. [Concomitant]
     Active Substance: RANITIDINE

REACTIONS (2)
  - Sinusitis [Unknown]
  - Upper respiratory tract infection [Unknown]

NARRATIVE: CASE EVENT DATE: 201510
